FAERS Safety Report 12095408 (Version 1)
Quarter: 2016Q1

REPORT INFORMATION
  Report Type: Spontaneous
  Country: US (occurrence: US)
  Receive Date: 20160219
  Receipt Date: 20160219
  Transmission Date: 20160526
  Serious: Yes (Hospitalization)
  Sender: FDA-Public Use
  Company Number: US-ACTELION-A-US2016-131428

PATIENT
  Age: 49 Year
  Sex: Male

DRUGS (12)
  1. MIRTAZAPINE. [Concomitant]
     Active Substance: MIRTAZAPINE
     Dosage: 7.5 MG, UNK
  2. SILDENAFIL. [Concomitant]
     Active Substance: SILDENAFIL
     Dosage: 20 MG, UNK
  3. JANTOVEN [Concomitant]
     Active Substance: WARFARIN SODIUM
  4. ALPRAZOLAM. [Concomitant]
     Active Substance: ALPRAZOLAM
  5. CARBAMAZEPINE. [Concomitant]
     Active Substance: CARBAMAZEPINE
  6. TYLENOL [Concomitant]
     Active Substance: ACETAMINOPHEN
     Dosage: 500 MG, UNK
  7. DEPAKENE [Concomitant]
     Active Substance: VALPROIC ACID
  8. COUMADIN [Concomitant]
     Active Substance: WARFARIN SODIUM
     Dosage: 5 MG, UNK
  9. OPSUMIT [Suspect]
     Active Substance: MACITENTAN
     Indication: PULMONARY HYPERTENSION
     Dosage: 10 MG, UNK
     Route: 048
     Dates: start: 201410, end: 20160106
  10. XANAX [Concomitant]
     Active Substance: ALPRAZOLAM
     Dosage: 0.25 MG, UNK
  11. MIRALAX [Concomitant]
     Active Substance: POLYETHYLENE GLYCOL 3350
  12. GEODON [Concomitant]
     Active Substance: ZIPRASIDONE HYDROCHLORIDE\ZIPRASIDONE MESYLATE
     Dosage: 40 MG, BID

REACTIONS (9)
  - Hemiparesis [Recovering/Resolving]
  - Concomitant disease aggravated [Recovering/Resolving]
  - Fluid overload [Recovering/Resolving]
  - Bacterial test positive [Recovering/Resolving]
  - Gastrostomy [Recovering/Resolving]
  - Hypotension [Recovering/Resolving]
  - Dependence on respirator [Recovering/Resolving]
  - Pneumonia [Recovering/Resolving]
  - Respiratory failure [Recovering/Resolving]

NARRATIVE: CASE EVENT DATE: 20151209
